FAERS Safety Report 11980283 (Version 1)
Quarter: 2016Q1

REPORT INFORMATION
  Report Type: Spontaneous
  Country: IT (occurrence: IT)
  Receive Date: 20160129
  Receipt Date: 20160129
  Transmission Date: 20160526
  Serious: Yes (Hospitalization)
  Sender: FDA-Public Use
  Company Number: IT-PFIZER INC-2016051039

PATIENT
  Age: 59 Year
  Sex: Male

DRUGS (3)
  1. LORAZEPAM. [Suspect]
     Active Substance: LORAZEPAM
  2. OLANZAPINE. [Suspect]
     Active Substance: OLANZAPINE
  3. BIPERIDEN [Suspect]
     Active Substance: BIPERIDEN

REACTIONS (3)
  - Megacolon [Unknown]
  - Large intestine perforation [Unknown]
  - Peritonitis [Unknown]
